FAERS Safety Report 16738024 (Version 2)
Quarter: 2019Q3

REPORT INFORMATION
  Report Type: Report from Study
  Country: BR (occurrence: BR)
  Receive Date: 20190824
  Receipt Date: 20190903
  Transmission Date: 20191005
  Serious: Yes (Hospitalization, Other)
  Sender: FDA-Public Use
  Company Number: PHHY2019BR151021

PATIENT
  Age: 63 Year
  Sex: Female

DRUGS (4)
  1. LETROZOL [Suspect]
     Active Substance: LETROZOLE
     Indication: PRODUCT USED FOR UNKNOWN INDICATION
     Dosage: UNK
     Route: 065
  2. KISQALI [Suspect]
     Active Substance: RIBOCICLIB
     Dosage: UNK
     Route: 065
     Dates: start: 20190630, end: 20190721
  3. KISQALI [Suspect]
     Active Substance: RIBOCICLIB
     Indication: PRODUCT USED FOR UNKNOWN INDICATION
     Dosage: UNK
     Route: 065
     Dates: start: 20190527
  4. VERAPAMIL [Suspect]
     Active Substance: VERAPAMIL HYDROCHLORIDE
     Indication: PRODUCT USED FOR UNKNOWN INDICATION
     Route: 065

REACTIONS (48)
  - Metastases to pleura [Unknown]
  - Blood test abnormal [Unknown]
  - Decreased immune responsiveness [Unknown]
  - Overweight [Unknown]
  - Device failure [Unknown]
  - Dyspnoea [Unknown]
  - Urinary incontinence [Unknown]
  - Tachycardia [Unknown]
  - Catarrh [Unknown]
  - Sleep disorder [Unknown]
  - Headache [Unknown]
  - Malaise [Unknown]
  - Metastases to spine [Unknown]
  - Pubic pain [Unknown]
  - Bone pain [Unknown]
  - Musculoskeletal pain [Unknown]
  - Dizziness [Unknown]
  - Abdominal pain [Unknown]
  - Oropharyngeal pain [Unknown]
  - Breast cancer recurrent [Unknown]
  - Skin exfoliation [Unknown]
  - Cough [Unknown]
  - Peripheral swelling [Unknown]
  - Liver disorder [Unknown]
  - Pain [Unknown]
  - Liver function test increased [Unknown]
  - Arthralgia [Unknown]
  - Dysphonia [Unknown]
  - Gait disturbance [Unknown]
  - Speech disorder [Unknown]
  - Pleural effusion [Unknown]
  - Drug-induced liver injury [Unknown]
  - Influenza [Not Recovered/Not Resolved]
  - Pleuritic pain [Unknown]
  - Skin wrinkling [Unknown]
  - Pelvic pain [Unknown]
  - Muscle injury [Unknown]
  - Dyspepsia [Unknown]
  - Vertigo [Unknown]
  - Head discomfort [Unknown]
  - Nail disorder [Unknown]
  - Lung disorder [Unknown]
  - Memory impairment [Unknown]
  - Pain in extremity [Unknown]
  - Abdominal distension [Unknown]
  - Pulmonary pain [Unknown]
  - Hypertension [Unknown]
  - Abdominal pain upper [Unknown]

NARRATIVE: CASE EVENT DATE: 201904
